FAERS Safety Report 19758127 (Version 1)
Quarter: 2021Q3

REPORT INFORMATION
  Report Type: Spontaneous
  Country: US (occurrence: US)
  Receive Date: 20210828
  Receipt Date: 20210828
  Transmission Date: 20211014
  Serious: Yes (Hospitalization, Other)
  Sender: FDA-Public Use
  Company Number: US-SETONPHARMA-2020SETSPO00007

PATIENT
  Age: 34 Year
  Sex: Male
  Weight: 70.9 kg

DRUGS (2)
  1. IBRUTINIB [Suspect]
     Active Substance: IBRUTINIB
     Indication: CHRONIC GRAFT VERSUS HOST DISEASE
     Route: 048
     Dates: start: 20181016, end: 20190130
  2. PREDNISOLONE. [Suspect]
     Active Substance: PREDNISOLONE
     Indication: CHRONIC GRAFT VERSUS HOST DISEASE
     Dosage: ALT 20 MG
     Route: 048
     Dates: start: 20181010

REACTIONS (8)
  - Hepatic cirrhosis [Not Recovered/Not Resolved]
  - Oedema peripheral [Recovering/Resolving]
  - Suprapubic pain [Recovering/Resolving]
  - Haematuria [Recovering/Resolving]
  - Urinary tract infection [Recovered/Resolved]
  - Abdominal distension [Recovering/Resolving]
  - Dyspnoea [Recovered/Resolved]
  - Chest discomfort [Recovered/Resolved]

NARRATIVE: CASE EVENT DATE: 20190126
